FAERS Safety Report 6735253-8 (Version None)
Quarter: 2010Q2

REPORT INFORMATION
  Report Type: 
  Country: None (occurrence: None)
  Receive Date: 20100521
  Receipt Date: 20100518
  Transmission Date: 20101027
  Serious: Yes (Hospitalization)
  Sender: FDA-Public Use
  Company Number: CH-WYE-G06140310

PATIENT
  Age: 19 Year
  Sex: Male

DRUGS (1)
  1. RAPAMUNE [Suspect]
     Indication: TUBEROUS SCLEROSIS
     Route: 048
     Dates: start: 20100101, end: 20100420

REACTIONS (9)
  - EAR DISORDER [None]
  - ENCEPHALOPATHY [None]
  - HEADACHE [None]
  - HYPOKINESIA [None]
  - LOSS OF CONSCIOUSNESS [None]
  - PHOTOPHOBIA [None]
  - PSYCHOMOTOR RETARDATION [None]
  - SPEECH DISORDER [None]
  - VERTIGO [None]
